FAERS Safety Report 10395704 (Version 2)
Quarter: 2014Q4

REPORT INFORMATION
  Report Type: Spontaneous
  Country: CH (occurrence: CH)
  Receive Date: 20140820
  Receipt Date: 20141120
  Transmission Date: 20150528
  Serious: Yes (Death, Hospitalization)
  Sender: FDA-Public Use
  Company Number: CH-BAYER-2014-119806

PATIENT
  Age: 74 Year
  Sex: Male

DRUGS (1)
  1. NEXAVAR [Suspect]
     Active Substance: SORAFENIB
     Indication: HEPATOCELLULAR CARCINOMA
     Dosage: 400 MG/DAY
     Route: 048
     Dates: start: 20140805

REACTIONS (4)
  - Asthenia [None]
  - Fatigue [None]
  - General physical health deterioration [None]
  - Cerebrovascular accident [Fatal]

NARRATIVE: CASE EVENT DATE: 20140822
